FAERS Safety Report 13510797 (Version 1)
Quarter: 2017Q2

REPORT INFORMATION
  Report Type: Spontaneous
  Country: US (occurrence: US)
  Receive Date: 20170503
  Receipt Date: 20170503
  Transmission Date: 20170830
  Serious: Yes (Disabling, Other)
  Sender: FDA-Public Use
  Company Number: None

PATIENT
  Age: 69 Year
  Sex: Female
  Weight: 90.8 kg

DRUGS (29)
  1. ZINC. [Concomitant]
     Active Substance: ZINC
  2. PROBIOTIC [Concomitant]
     Active Substance: PROBIOTICS NOS
  3. VITAMIN B12 [Concomitant]
     Active Substance: CYANOCOBALAMIN
  4. VITAMIN C [Concomitant]
     Active Substance: ASCORBIC ACID
  5. BETA CAROTENE [Concomitant]
  6. MULTI VIT [Concomitant]
  7. ATIVAN [Concomitant]
     Active Substance: LORAZEPAM
  8. CRANBERRY SOFTGEL [Concomitant]
  9. B-6 [Concomitant]
  10. MAGNESIUM [Concomitant]
     Active Substance: MAGNESIUM
  11. BIOTIN [Concomitant]
     Active Substance: BIOTIN
  12. CHROMIUM PICOLINATE [Concomitant]
     Active Substance: CHROMIUM PICOLINATE
  13. KLONOPIN [Concomitant]
     Active Substance: CLONAZEPAM
  14. FLAXSEED [Concomitant]
     Active Substance: FLAX SEED
  15. VITAMIN D [Concomitant]
     Active Substance: CHOLECALCIFEROL
  16. COQ10 [Concomitant]
     Active Substance: UBIDECARENONE
  17. SYNTHROID [Concomitant]
     Active Substance: LEVOTHYROXINE SODIUM
  18. POTASSIUM [Concomitant]
     Active Substance: POTASSIUM
  19. LOW DOSE ASPIRIN [Concomitant]
     Active Substance: ASPIRIN
  20. COEL NADH [Concomitant]
  21. OIL OF  OREGANO [Concomitant]
  22. GARLIC OIL [Concomitant]
     Active Substance: GARLIC OIL
  23. VITAMIN E [Concomitant]
     Active Substance: .ALPHA.-TOCOPHEROL
  24. CALCIUM [Concomitant]
     Active Substance: CALCIUM
  25. LIALDA [Suspect]
     Active Substance: MESALAMINE
     Indication: COLITIS ULCERATIVE
     Route: 048
     Dates: start: 20140814, end: 20150115
  26. PENTASA [Concomitant]
     Active Substance: MESALAMINE
  27. FISH OIL [Concomitant]
     Active Substance: FISH OIL
  28. DHEA [Concomitant]
     Active Substance: PRASTERONE
  29. COD LIVER OIL [Concomitant]
     Active Substance: COD LIVER OIL

REACTIONS (7)
  - Confusional state [None]
  - Cognitive disorder [None]
  - Colitis [None]
  - Fatigue [None]
  - Haemorrhage [None]
  - Skin discolouration [None]
  - Asthenia [None]

NARRATIVE: CASE EVENT DATE: 20140902
